FAERS Safety Report 18987494 (Version 4)
Quarter: 2021Q2

REPORT INFORMATION
  Report Type: Report from Study
  Country: CA (occurrence: CA)
  Receive Date: 20210309
  Receipt Date: 20210407
  Transmission Date: 20210717
  Serious: Yes (Hospitalization, Other)
  Sender: FDA-Public Use
  Company Number: CA-TAKEDA-2021TUS009799

PATIENT
  Age: 63 Year
  Sex: Male

DRUGS (3)
  1. CUVITRU [Suspect]
     Active Substance: HUMAN IMMUNOGLOBULIN G
     Dosage: 36 GRAM, 2/WEEK
     Route: 065
     Dates: start: 20210210
  2. CUVITRU [Suspect]
     Active Substance: HUMAN IMMUNOGLOBULIN G
     Indication: CHRONIC INFLAMMATORY DEMYELINATING POLYRADICULONEUROPATHY
     Dosage: 36 GRAM, 2/WEEK
     Route: 065
     Dates: start: 20210210
  3. CUVITRU [Suspect]
     Active Substance: HUMAN IMMUNOGLOBULIN G
     Dosage: 36 GRAM, 1/WEEK
     Route: 065
     Dates: start: 20210210, end: 20210313

REACTIONS (10)
  - Infusion site pain [Unknown]
  - Infusion site haemorrhage [Unknown]
  - Fluid retention [Unknown]
  - Product use complaint [Unknown]
  - Tremor [Unknown]
  - Weight fluctuation [Unknown]
  - Off label use [Recovered/Resolved]
  - Renal failure [Unknown]
  - Hypoaesthesia [Unknown]
  - Therapy cessation [Unknown]

NARRATIVE: CASE EVENT DATE: 20210210
